FAERS Safety Report 20766228 (Version 6)
Quarter: 2023Q2

REPORT INFORMATION
  Report Type: Spontaneous
  Country: US (occurrence: US)
  Receive Date: 20220428
  Receipt Date: 20230515
  Transmission Date: 20230721
  Serious: No
  Sender: FDA-Public Use
  Company Number: US-PFIZER INC-202200426638

PATIENT
  Age: 42 Year
  Sex: Female

DRUGS (3)
  1. IBRANCE [Suspect]
     Active Substance: PALBOCICLIB
     Indication: Ovarian cancer
     Dosage: 125 MG
  2. IBRANCE [Suspect]
     Active Substance: PALBOCICLIB
     Dosage: 100 MG
     Dates: start: 20220316
  3. LETROZOLE [Concomitant]
     Active Substance: LETROZOLE
     Indication: Ovarian cancer
     Dosage: UNK

REACTIONS (21)
  - Off label use [Unknown]
  - Dizziness [Unknown]
  - Nausea [Unknown]
  - Fatigue [Unknown]
  - Pain [Unknown]
  - Arthralgia [Unknown]
  - Gingival pain [Unknown]
  - Toothache [Unknown]
  - Blood potassium decreased [Unknown]
  - Full blood count abnormal [Unknown]
  - White blood cell count decreased [Unknown]
  - Hot flush [Unknown]
  - Gingival bleeding [Unknown]
  - Fatigue [Not Recovered/Not Resolved]
  - Tongue disorder [Unknown]
  - Stomatitis [Unknown]
  - Influenza like illness [Not Recovered/Not Resolved]
  - Headache [Not Recovered/Not Resolved]
  - Pain [Not Recovered/Not Resolved]
  - Hypoaesthesia oral [Unknown]
  - Eye swelling [Not Recovered/Not Resolved]

NARRATIVE: CASE EVENT DATE: 20230508
